FAERS Safety Report 7085549 (Version 20)
Quarter: 2014Q2

REPORT INFORMATION
  Report Type: Spontaneous
  Country: US (occurrence: US)
  Receive Date: 20090819
  Receipt Date: 20140414
  Transmission Date: 20141212
  Serious: Yes (Death, Hospitalization, Other)
  Sender: FDA-Public Use
  Company Number: PHEH2009US09085

PATIENT
  Age: 53 Year
  Sex: Female

DRUGS (31)
  1. AREDIA [Suspect]
     Dosage: 90 MG,      EVERY 3-4 WEEK
     Route: 041
  2. PAMIDRONATE DISODIUM [Suspect]
     Dosage: UNK UKN, UNK
     Route: 041
  3. ZOMETA [Suspect]
     Dosage: UNK UKN, UNK
     Route: 041
     Dates: end: 200505
  4. LISINOPRIL [Concomitant]
     Dosage: 10 MG, DAILY
  5. PROTONIX ^PHARMACIA^ [Concomitant]
  6. IMODIUM ^JANSSEN^ [Concomitant]
  7. PAXIL [Concomitant]
     Dosage: 20 MG, DAILY
  8. PROVERA [Concomitant]
  9. COMPAZINE [Concomitant]
  10. ATIVAN [Concomitant]
  11. XANAX [Concomitant]
  12. DEPAKOTE [Concomitant]
     Dosage: 250 MG, TID
  13. VELCADE [Concomitant]
  14. REVLIMID [Concomitant]
  15. CYCLOPHOSPHAMIDE [Concomitant]
  16. NIFEDIPINE [Concomitant]
     Dosage: 30 MG, QD
     Route: 048
  17. LOPRESSOR [Concomitant]
     Dosage: 50 MG, BID
     Route: 048
  18. GRANULOCYTE COLONY-STIMULATING FACTOR NOS [Concomitant]
     Dosage: 300 UG, QD
     Route: 058
  19. METOPROLOL [Concomitant]
     Dosage: 50 MG, BID
     Route: 048
  20. LYRICA [Concomitant]
     Dosage: 75 MG, UNK
     Route: 048
  21. LASIX [Concomitant]
     Dosage: 40 MG, QD
     Route: 048
  22. FAMCICLOVIR [Concomitant]
  23. CLONIDINE [Concomitant]
     Dosage: 0.1 MG, UNK
     Route: 048
  24. COREG [Concomitant]
     Dosage: 25 MG, UNK
     Route: 048
  25. PREDNISONE [Concomitant]
     Dosage: 100 MG, QD
  26. VANCOMYCIN [Concomitant]
     Dosage: UNK UKN, Q36H
  27. DOXYCYCLINE [Concomitant]
     Dosage: 100 MG, UNK
  28. AVELOX [Concomitant]
  29. CATAPRES [Concomitant]
     Dosage: 0.2 MG, UNK
  30. RENAGEL [Concomitant]
     Dosage: 1600 MG, TID
  31. CYTOXAN [Concomitant]

REACTIONS (148)
  - Lung consolidation [Unknown]
  - Nephrogenic anaemia [Unknown]
  - Nausea [Unknown]
  - Alopecia [Unknown]
  - Intervertebral disc degeneration [Unknown]
  - Intervertebral disc protrusion [Unknown]
  - Throat tightness [Unknown]
  - Road traffic accident [Unknown]
  - Ankle fracture [Unknown]
  - Bone pain [Unknown]
  - Dizziness [Unknown]
  - Exostosis of jaw [Unknown]
  - Kyphosis [Unknown]
  - Oral discomfort [Unknown]
  - Presbyopia [Unknown]
  - Myopia [Unknown]
  - Lip swelling [Unknown]
  - Burning sensation [Unknown]
  - Cellulitis [Unknown]
  - Tremor [Unknown]
  - Pathological fracture [Unknown]
  - Erythema [Unknown]
  - Hyperhidrosis [Unknown]
  - Musculoskeletal discomfort [Unknown]
  - Cerebrovascular accident [Fatal]
  - Osteonecrosis of jaw [Unknown]
  - Pain [Unknown]
  - Infection [Unknown]
  - Deformity [Unknown]
  - Disability [Unknown]
  - Anxiety [Unknown]
  - Jaw fracture [Unknown]
  - Gingivitis [Unknown]
  - Bone loss [Unknown]
  - Injury [Unknown]
  - Periodontal disease [Unknown]
  - Exposed bone in jaw [Unknown]
  - Emotional distress [Unknown]
  - Renal failure acute [Unknown]
  - Nephrosclerosis [Unknown]
  - Hypertension [Unknown]
  - Osteoporosis [Unknown]
  - Mucosal inflammation [Recovered/Resolved]
  - Enteritis [Recovered/Resolved]
  - Pulmonary oedema [Unknown]
  - Mitral valve incompetence [Unknown]
  - Tricuspid valve incompetence [Unknown]
  - Pulmonary hypertension [Unknown]
  - Benign breast neoplasm [Unknown]
  - Spinal osteoarthritis [Unknown]
  - Hyperparathyroidism [Unknown]
  - Diarrhoea [Unknown]
  - Immunodeficiency [Unknown]
  - Anaemia [Unknown]
  - Hypophosphataemia [Unknown]
  - Cardiac failure congestive [Unknown]
  - Thrombocytopenia [Unknown]
  - Bence Jones proteinuria [Unknown]
  - Plasmacytosis [Unknown]
  - Visual acuity reduced [Unknown]
  - Herpes zoster [Unknown]
  - Gastrooesophageal reflux disease [Unknown]
  - Splenomegaly [Unknown]
  - Subclavian artery stenosis [Unknown]
  - Haemangioma of spleen [Unknown]
  - Pleural effusion [Unknown]
  - Metabolic acidosis [Unknown]
  - Tachycardia [Unknown]
  - Pancytopenia [Unknown]
  - Large intestine polyp [Unknown]
  - Hypokalaemia [Unknown]
  - Atelectasis [Unknown]
  - Diastolic dysfunction [Unknown]
  - Acute respiratory failure [Unknown]
  - Upper airway resistance syndrome [Unknown]
  - Insomnia [Unknown]
  - Superior vena cava syndrome [Unknown]
  - Dyspepsia [Unknown]
  - Haemorrhoids [Unknown]
  - Cyst [Unknown]
  - Spinal pain [Unknown]
  - Arthralgia [Unknown]
  - Influenza like illness [Unknown]
  - Crepitations [Unknown]
  - Oedema [Unknown]
  - Staphylococcal infection [Unknown]
  - Chills [Unknown]
  - Dyspnoea exertional [Unknown]
  - Pyrexia [Unknown]
  - Orthopnoea [Unknown]
  - Nasal congestion [Unknown]
  - Osteoarthritis [Unknown]
  - Arrhythmia [Unknown]
  - Supraventricular extrasystoles [Unknown]
  - Left ventricular hypertrophy [Unknown]
  - Renal tubular necrosis [Unknown]
  - Pericardial effusion [Unknown]
  - Vascular compression [Unknown]
  - Radiculopathy [Unknown]
  - Neuropathy peripheral [Unknown]
  - Atrial fibrillation [Unknown]
  - Pain in jaw [Unknown]
  - Osteitis [Unknown]
  - Large intestine benign neoplasm [Unknown]
  - Cardiomegaly [Unknown]
  - Aortic valve incompetence [Unknown]
  - Generalised tonic-clonic seizure [Unknown]
  - Staphylococcal bacteraemia [Unknown]
  - Brain injury [Unknown]
  - Respiratory distress [Unknown]
  - Fluid overload [Unknown]
  - Hypertensive crisis [Unknown]
  - Leukocytosis [Unknown]
  - Peripheral arterial occlusive disease [Unknown]
  - Sinus tachycardia [Unknown]
  - Malignant hypertension [Recovering/Resolving]
  - Periorbital oedema [Unknown]
  - Pulmonary congestion [Unknown]
  - Hypoxia [Unknown]
  - Angina pectoris [Unknown]
  - Sinus congestion [Unknown]
  - Facial pain [Unknown]
  - Swelling face [Unknown]
  - Peripheral swelling [Unknown]
  - Lacrimation increased [Unknown]
  - Fatigue [Unknown]
  - Cough [Unknown]
  - Vomiting [Unknown]
  - Mitral valve calcification [Unknown]
  - Aortic arteriosclerosis [Unknown]
  - Mitral valve sclerosis [Unknown]
  - Gingival disorder [Unknown]
  - Loose tooth [Unknown]
  - Hyperparathyroidism secondary [Unknown]
  - Vitamin D decreased [Unknown]
  - Neuralgia [Unknown]
  - Myoclonus [Unknown]
  - Rotator cuff syndrome [Unknown]
  - Bone swelling [Unknown]
  - Paraesthesia [Unknown]
  - Tooth loss [Unknown]
  - Renal atrophy [Unknown]
  - Restless legs syndrome [Unknown]
  - Malignant melanoma [Unknown]
  - Bone disorder [Unknown]
  - Muscle spasms [Unknown]
  - Plasma cell myeloma [Unknown]
  - Malignant neoplasm progression [Unknown]
